FAERS Safety Report 13594035 (Version 2)
Quarter: 2017Q2

REPORT INFORMATION
  Report Type: Report from Study
  Country: PT (occurrence: PT)
  Receive Date: 20170530
  Receipt Date: 20170613
  Transmission Date: 20170830
  Serious: Yes (Life-Threatening, Other)
  Sender: FDA-Public Use
  Company Number: PT-SA-2017SA095692

PATIENT
  Age: 45 Year
  Sex: Female

DRUGS (16)
  1. SUNITINIB MALATE. [Suspect]
     Active Substance: SUNITINIB MALATE
     Indication: BREAST CANCER
     Route: 048
     Dates: start: 20090618, end: 20090701
  2. SUNITINIB MALATE. [Suspect]
     Active Substance: SUNITINIB MALATE
     Indication: BREAST CANCER
     Route: 048
     Dates: start: 20090820
  3. OMEPRAZOLE. [Concomitant]
     Active Substance: OMEPRAZOLE
  4. LOPERAMIDE [Concomitant]
     Active Substance: LOPERAMIDE
  5. TAXOTERE [Suspect]
     Active Substance: DOCETAXEL
     Indication: BREAST CANCER
     Route: 042
     Dates: start: 20090729, end: 20090729
  6. HYDROCORTISONE. [Concomitant]
     Active Substance: HYDROCORTISONE
     Dates: start: 20090729
  7. SUNITINIB MALATE. [Suspect]
     Active Substance: SUNITINIB MALATE
     Indication: BREAST CANCER
     Route: 048
     Dates: start: 20090730, end: 20090812
  8. METAMIZOLE MAGNESIUM [Concomitant]
     Active Substance: METAMIZOLE MAGNESIUM
     Dates: start: 20090717
  9. RANITIDINE. [Concomitant]
     Active Substance: RANITIDINE
     Dates: start: 20090729
  10. METOCLOPRAMIDE. [Concomitant]
     Active Substance: METOCLOPRAMIDE
  11. SUNITINIB MALATE. [Suspect]
     Active Substance: SUNITINIB MALATE
     Indication: BREAST CANCER
     Route: 048
     Dates: start: 20090709, end: 20090722
  12. PREDNISOLONE. [Concomitant]
     Active Substance: PREDNISOLONE
  13. TAXOTERE [Suspect]
     Active Substance: DOCETAXEL
     Indication: BREAST CANCER
     Route: 042
     Dates: start: 20090708, end: 20090708
  14. CLEMASTINE [Concomitant]
     Active Substance: CLEMASTINE
     Dates: start: 20090729
  15. DEXAMETASON [Concomitant]
     Active Substance: DEXAMETHASONE
  16. TAXOTERE [Suspect]
     Active Substance: DOCETAXEL
     Indication: BREAST CANCER
     Route: 042
     Dates: start: 20090819, end: 20090819

REACTIONS (5)
  - Anaphylactic reaction [Recovered/Resolved]
  - Dyspnoea [Recovered/Resolved]
  - Malaise [Recovered/Resolved]
  - Oxygen saturation decreased [Recovered/Resolved]
  - Flushing [Recovered/Resolved]

NARRATIVE: CASE EVENT DATE: 20090729
